FAERS Safety Report 7622868-8 (Version None)
Quarter: 2011Q3

REPORT INFORMATION
  Report Type: 
  Country: None (occurrence: None)
  Receive Date: 20110720
  Receipt Date: 20110517
  Transmission Date: 20111222
  Serious: Yes (Other)
  Sender: FDA-Public Use
  Company Number: US-UCBSA-033107

PATIENT
  Sex: Male

DRUGS (8)
  1. DILANTIN [Concomitant]
     Indication: CONVULSION
     Dosage: 250 MG AM AND 200 MG PM
     Dates: start: 20090519
  2. PLAVIX [Concomitant]
  3. VIMPAT [Suspect]
     Indication: EPILEPSY
     Route: 048
     Dates: start: 20090821
  4. VIMPAT [Suspect]
  5. LIPITOR [Concomitant]
  6. KEPPRA XR [Suspect]
     Indication: CONVULSION
     Dosage: AT BEDTIME
     Dates: start: 20050101
  7. ZONIGRAM [Concomitant]
     Dates: end: 20090501
  8. VIMPAT [Suspect]

REACTIONS (3)
  - BACK PAIN [None]
  - MUSCLE SPASMS [None]
  - CONVULSION [None]
